FAERS Safety Report 8386491-2 (Version None)
Quarter: 2012Q2

REPORT INFORMATION
  Report Type: 
  Country: None (occurrence: None)
  Receive Date: 20120525
  Receipt Date: 20120522
  Transmission Date: 20120825
  Serious: Yes (Hospitalization)
  Sender: FDA-Public Use
  Company Number: US-AMGEN-USASP2012032061

PATIENT
  Age: 68 Year
  Sex: Female

DRUGS (1)
  1. ENBREL [Suspect]
     Indication: RHEUMATOID ARTHRITIS
     Dosage: 50 MG, QWK
     Dates: start: 20021201

REACTIONS (9)
  - JOINT DISLOCATION [None]
  - THROMBOSIS [None]
  - BLINDNESS [None]
  - WEIGHT DECREASED [None]
  - CEREBROVASCULAR ACCIDENT [None]
  - INCONTINENCE [None]
  - URINARY TRACT INFECTION [None]
  - SEPSIS [None]
  - PARALYSIS [None]
